FAERS Safety Report 13531514 (Version 1)
Quarter: 2017Q2

REPORT INFORMATION
  Report Type: Spontaneous
  Country: US (occurrence: US)
  Receive Date: 20170510
  Receipt Date: 20170510
  Transmission Date: 20170830
  Serious: Yes (Other)
  Sender: FDA-Public Use
  Company Number: US-TEVA-766098USA

PATIENT
  Sex: Female
  Weight: 54.48 kg

DRUGS (6)
  1. ARMOUR THYROID [Concomitant]
     Active Substance: THYROID, PORCINE
     Indication: HYPOTHYROIDISM
  2. LISINOPRIL. [Concomitant]
     Active Substance: LISINOPRIL
     Indication: CARDIOMEGALY
  3. DIAZEPAM. [Concomitant]
     Active Substance: DIAZEPAM
  4. PROVIGIL [Suspect]
     Active Substance: MODAFINIL
     Indication: SLEEP APNOEA SYNDROME
     Route: 065
     Dates: start: 2010, end: 2010
  5. EFFEXOR [Concomitant]
     Active Substance: VENLAFAXINE HYDROCHLORIDE
     Indication: ANXIETY
  6. EFFEXOR [Concomitant]
     Active Substance: VENLAFAXINE HYDROCHLORIDE
     Indication: DEPRESSION

REACTIONS (8)
  - Addison^s disease [Unknown]
  - Colitis ulcerative [Unknown]
  - Rapid eye movements sleep abnormal [Unknown]
  - Diverticulitis [Unknown]
  - Fatigue [Unknown]
  - Loss of consciousness [Unknown]
  - Hepatitis C [Unknown]
  - Weight increased [Unknown]
